FAERS Safety Report 8845944 (Version 1)
Quarter: 2012Q4

REPORT INFORMATION
  Report Type: 
  Country: PL (occurrence: PL)
  Receive Date: 20121017
  Receipt Date: 20121017
  Transmission Date: 20130627
  Serious: Yes (Hospitalization)
  Sender: FDA-Public Use
  Company Number: PL-ROCHE-1143045

PATIENT
  Age: 37 Year
  Sex: Female
  Weight: 43 kg

DRUGS (4)
  1. INVIRASE [Suspect]
     Indication: HIV INFECTION
     Route: 065
     Dates: start: 20090115
  2. INVIRASE [Suspect]
     Route: 065
     Dates: start: 20110325
  3. INVIRASE [Suspect]
     Dosage: Dose redused
     Route: 065
  4. COMBIVIR [Suspect]
     Indication: HIV INFECTION
     Route: 065

REACTIONS (5)
  - Meningitis cryptococcal [Unknown]
  - Rash generalised [Unknown]
  - Nausea [Unknown]
  - Vomiting [Unknown]
  - Diarrhoea [Unknown]
